FAERS Safety Report 9725666 (Version 1)
Quarter: 2013Q4

REPORT INFORMATION
  Report Type: Spontaneous
  Country: US (occurrence: None)
  Receive Date: 20131127
  Receipt Date: 20131127
  Transmission Date: 20140711
  Serious: Yes (Hospitalization, Other)
  Sender: FDA-Public Use
  Company Number: OPCR20130425

PATIENT
  Age: 23 Year
  Sex: Female

DRUGS (1)
  1. OPANA ER [Suspect]
     Indication: DRUG ABUSE
     Dosage: UP TO 8 TIMES DAILY
     Route: 042

REACTIONS (13)
  - Depressed level of consciousness [None]
  - Chest discomfort [None]
  - Dyspnoea [None]
  - Anaemia [None]
  - Thrombocytopenia [None]
  - Haemolysis [None]
  - Blood lactate dehydrogenase increased [None]
  - Microangiopathic haemolytic anaemia [None]
  - Red blood cell schistocytes present [None]
  - Drug abuse [None]
  - Incorrect route of drug administration [None]
  - Wrong technique in drug usage process [None]
  - Thrombotic thrombocytopenic purpura [None]
